FAERS Safety Report 8336428-7 (Version None)
Quarter: 2012Q2

REPORT INFORMATION
  Report Type: 
  Country: None (occurrence: None)
  Receive Date: 20120504
  Receipt Date: 20120502
  Transmission Date: 20120825
  Serious: Yes (Death)
  Sender: FDA-Public Use
  Company Number: PHHY2012NL037616

PATIENT
  Sex: Male

DRUGS (4)
  1. ZOMETA [Suspect]
     Dosage: MG/100 ML SOLUTION FOR IV INFUSION 1X PER 28 DAYS
     Route: 042
     Dates: start: 20120319
  2. ZOMETA [Suspect]
     Dosage: MG/100 ML SOLUTION FOR IV INFUSION 1X PER 28 DAYS
     Route: 042
     Dates: start: 20100811
  3. ZOMETA [Suspect]
     Dosage: MG/100 ML SOLUTION FOR IV INFUSION 1X PER 28 DAYS
     Route: 042
     Dates: start: 20120417
  4. ZOMETA [Suspect]
     Indication: METASTASES TO PROSTATE
     Dosage: MG/100 ML SOLUTION FOR IV INFUSION 1X PER 28 DAYS
     Route: 042

REACTIONS (1)
  - DEATH [None]
